FAERS Safety Report 4884393-7 (Version None)
Quarter: 2006Q1

REPORT INFORMATION
  Report Type: 
  Country: None (occurrence: None)
  Receive Date: 20060117
  Receipt Date: 20060117
  Transmission Date: 20060701
  Serious: Yes (Hospitalization)
  Sender: FDA-Public Use
  Company Number: None

PATIENT
  Age: 68 Year
  Sex: Male

DRUGS (4)
  1. FOSAMAX [Suspect]
     Indication: OSTEOPOROSIS
     Dosage: 70 MG WEEKLY PO
     Route: 048
     Dates: start: 20041019, end: 20041023
  2. CELLUVISE [Concomitant]
  3. LUMIGAN [Concomitant]
  4. MOBIC [Concomitant]

REACTIONS (2)
  - CHEST PAIN [None]
  - OESOPHAGEAL SPASM [None]
